FAERS Safety Report 4850168-8 (Version None)
Quarter: 2005Q4

REPORT INFORMATION
  Report Type: 
  Country: None (occurrence: None)
  Receive Date: 20051123
  Receipt Date: 20050815
  Transmission Date: 20060501
  Serious: Yes (Disabling)
  Sender: FDA-Public Use
  Company Number: 2005090268

PATIENT
  Age: 71 Year
  Sex: Male

DRUGS (7)
  1. LIPITOR [Suspect]
     Indication: HYPERLIPIDAEMIA
     Dosage: 40 MG (40 MG, 1 IN 1 D), ORAL
     Route: 048
     Dates: start: 20010101, end: 20040101
  2. LIPITOR [Suspect]
     Indication: LOW DENSITY LIPOPROTEIN INCREASED
     Dosage: 40 MG (40 MG, 1 IN 1 D), ORAL
     Route: 048
     Dates: start: 20010101, end: 20040101
  3. GLYBURIDE [Concomitant]
  4. METFORMIN [Concomitant]
  5. ASPIRIN [Concomitant]
  6. BEXTRA [Concomitant]
  7. ATENOLOL [Concomitant]

REACTIONS (2)
  - MUSCULAR WEAKNESS [None]
  - MYALGIA [None]
